FAERS Safety Report 23668001 (Version 5)
Quarter: 2025Q1

REPORT INFORMATION
  Report Type: Report from Study
  Country: US (occurrence: US)
  Receive Date: 20240325
  Receipt Date: 20250207
  Transmission Date: 20250408
  Serious: Yes (Hospitalization, Other)
  Sender: RECORDATI
  Company Number: US-ORPHANEU-2024001988

PATIENT

DRUGS (48)
  1. CARBAGLU [Suspect]
     Active Substance: CARGLUMIC ACID
     Indication: Propionic acidaemia
     Dosage: 800 MG, Q6H (4 TABLETS (800 MG) FOUR TIMES PER DAY) IN 2.5 ML OF WATER PER TABLET
     Route: 048
     Dates: start: 20201220
  2. CARBAGLU [Suspect]
     Active Substance: CARGLUMIC ACID
     Route: 048
  3. CARBAGLU [Suspect]
     Active Substance: CARGLUMIC ACID
     Dosage: 650 MILLIGRAM, QID
     Route: 048
     Dates: start: 20240308, end: 20240313
  4. CARBAGLU [Suspect]
     Active Substance: CARGLUMIC ACID
     Route: 048
     Dates: start: 20240314, end: 2024
  5. CARBAGLU [Suspect]
     Active Substance: CARGLUMIC ACID
     Dosage: 3 TABLETS (600 MG TOTAL) BY MOUTH 2 TIMES DAILY AND 3.5 TABLETS (700 MG TOTAL) 2 TIMES DAILY, QID
     Route: 048
     Dates: start: 2024, end: 2024
  6. CARBAGLU [Suspect]
     Active Substance: CARGLUMIC ACID
     Dosage: 700 MG, QID
     Route: 048
     Dates: start: 20240618
  7. CARBAGLU [Suspect]
     Active Substance: CARGLUMIC ACID
     Dosage: 800 MILLIGRAM, QID
     Dates: start: 20240922, end: 2024
  8. CARBAGLU [Suspect]
     Active Substance: CARGLUMIC ACID
     Dosage: 875 MILLIGRAM, QID
     Dates: start: 20241218, end: 20241218
  9. CARBAGLU [Suspect]
     Active Substance: CARGLUMIC ACID
     Route: 048
     Dates: start: 20241219
  10. CARBAGLU [Suspect]
     Active Substance: CARGLUMIC ACID
     Route: 048
  11. KEPPRA [Suspect]
     Active Substance: LEVETIRACETAM
     Indication: Product used for unknown indication
     Dosage: 300 MILLIGRAM (3 ML)), Q12H, (100 MG/ML SOLUTION)
     Route: 048
     Dates: start: 20240102, end: 20240110
  12. KEPPRA [Suspect]
     Active Substance: LEVETIRACETAM
     Dosage: 300 MILLIGRAM (3 ML)), Q12H, (100 MG/ML SOLUTION)
     Route: 048
     Dates: start: 20240117
  13. ONFI [Suspect]
     Active Substance: CLOBAZAM
     Indication: Product used for unknown indication
     Dosage: 5 MG (2 ML), BID (2.5 MG/ML SUSPENSION)
     Route: 048
     Dates: start: 20240425, end: 2024
  14. ONFI [Suspect]
     Active Substance: CLOBAZAM
     Dosage: 5 MG (2 ML), BID (2.5 MG/ML SUSPENSION)
     Route: 048
     Dates: start: 20240610, end: 202406
  15. DIASTAT [Concomitant]
     Active Substance: DIAZEPAM
     Indication: Seizure
     Route: 054
     Dates: start: 20221209
  16. HYDROCORTISONE [Concomitant]
     Active Substance: HYDROCORTISONE
     Indication: Pruritus
     Dosage: 1PERCENT OINTMENT, APPLY TOPICALLY 2 TIMES DAILY
     Route: 061
     Dates: start: 20220512
  17. PROPIMEX-1 [Concomitant]
     Indication: Propionic acidaemia
     Dates: start: 20220922
  18. PROPIMEX-1 [Concomitant]
     Dates: start: 20240103
  19. PREVACID SOLUTAB [Concomitant]
     Active Substance: LANSOPRAZOLE
     Indication: Product used for unknown indication
     Route: 048
     Dates: start: 20231116
  20. CARNITOR [Concomitant]
     Active Substance: LEVOCARNITINE
     Indication: Product used for unknown indication
     Dosage: 600 MILLIGRAM, TID ( 6 ML), (100 MG/ML SOLUTION )
     Route: 048
     Dates: start: 20240125
  21. CARNITOR [Concomitant]
     Active Substance: LEVOCARNITINE
     Dosage: 600 MILLIGRAM, TID ( 6 ML), (100 MG/ML SOLUTION )
     Route: 048
     Dates: start: 20241127
  22. COENZYME Q10 [Concomitant]
     Active Substance: DIETARY SUPPLEMENT\UBIDECARENONE
     Indication: Product used for unknown indication
     Dosage: 100 MILLIGRAM (1ML) DAILY, (100 MG/ML LIQUID)
     Route: 048
     Dates: start: 20220903
  23. MINERAL OIL [Concomitant]
     Active Substance: MINERAL OIL
     Indication: Product used for unknown indication
     Route: 061
     Dates: start: 20221202
  24. AQUAPHOR [Concomitant]
     Active Substance: PETROLATUM
     Indication: Product used for unknown indication
     Route: 061
     Dates: start: 20220615
  25. MIRALAX [Concomitant]
     Active Substance: POLYETHYLENE GLYCOL 3350
     Indication: Product used for unknown indication
     Route: 048
  26. MIRALAX [Concomitant]
     Active Substance: POLYETHYLENE GLYCOL 3350
     Route: 048
  27. VITAMIN B6 [Concomitant]
     Active Substance: PYRIDOXINE HYDROCHLORIDE
     Indication: Product used for unknown indication
     Route: 048
     Dates: start: 20220929
  28. TRIPLE PASTE [Concomitant]
     Indication: Rash
     Route: 061
     Dates: start: 20220615
  29. ILEX [Concomitant]
     Indication: Rash
     Route: 061
     Dates: start: 20221202
  30. ZINC OXIDE [Concomitant]
     Active Substance: ZINC OXIDE
     Indication: Rash
     Route: 061
     Dates: start: 20230317, end: 20240620
  31. Remedy Phytoplex Protectant Z Guard [Concomitant]
     Indication: Product used for unknown indication
     Route: 061
     Dates: start: 20221202
  32. PROPIMEX-2 [Concomitant]
     Indication: Propionic acidaemia
     Dates: start: 20240103
  33. TRANSDERM SCOP [Concomitant]
     Active Substance: SCOPOLAMINE
     Indication: Nausea
     Route: 062
     Dates: start: 20240323
  34. SODIUM CITRATE [Concomitant]
     Active Substance: SODIUM CITRATE
     Indication: Product used for unknown indication
  35. PRILOSEC [Concomitant]
     Active Substance: OMEPRAZOLE MAGNESIUM
     Indication: Product used for unknown indication
  36. MORPHINE SULFATE [Concomitant]
     Active Substance: MORPHINE SULFATE
     Indication: Product used for unknown indication
  37. LOVENOX [Concomitant]
     Active Substance: ENOXAPARIN SODIUM
     Indication: Product used for unknown indication
  38. VERSED [Concomitant]
     Active Substance: MIDAZOLAM HYDROCHLORIDE
     Indication: Product used for unknown indication
     Route: 045
  39. ALBUTEROL [Concomitant]
     Active Substance: ALBUTEROL
     Indication: Cough
     Dates: start: 20240529, end: 2024
  40. ALBUTEROL [Concomitant]
     Active Substance: ALBUTEROL
     Indication: Wheezing
     Dates: start: 20241106
  41. ALBUTEROL [Concomitant]
     Active Substance: ALBUTEROL
     Indication: Dyspnoea
  42. BUFFERED LIDOCAINE [Concomitant]
     Indication: Product used for unknown indication
  43. MELATONIN [Concomitant]
     Active Substance: MELATONIN
     Indication: Product used for unknown indication
     Dosage: 1 MG, QD (BEDTIME)
     Route: 048
  44. MELATONIN [Concomitant]
     Active Substance: MELATONIN
     Dosage: 0.25 MG, (1ML) QD 1MG/4ML(BEDTIME)
     Route: 048
  45. SODIUM CHLORIDE [Concomitant]
     Active Substance: SODIUM CHLORIDE
     Indication: Product used for unknown indication
     Route: 042
  46. KENALOG [Concomitant]
     Active Substance: TRIAMCINOLONE ACETONIDE
     Indication: Product used for unknown indication
     Dosage: 0.5 PERCENT CREAM, APPLY TOPICALLY 3 TIMES DAILY FOR 14 DAYS
     Route: 061
     Dates: start: 20240515, end: 20240620
  47. ZYRTEC [Concomitant]
     Active Substance: CETIRIZINE HYDROCHLORIDE
     Indication: Product used for unknown indication
     Dosage: 5 MILLIGRAM (5ML), QD (1MG/ML) 150 ML
     Route: 048
     Dates: start: 20241106
  48. SODIUM CITRATE AND CITRIC ACID [Concomitant]
     Active Substance: CITRIC ACID MONOHYDRATE\SODIUM CITRATE
     Indication: Product used for unknown indication

REACTIONS (14)
  - Metapneumovirus infection [Recovering/Resolving]
  - Hyperammonaemic crisis [Recovering/Resolving]
  - Hyperammonaemic crisis [Recovered/Resolved]
  - Vomiting [Recovering/Resolving]
  - Diarrhoea [Unknown]
  - Vomiting [Recovering/Resolving]
  - Vomiting [Recovered/Resolved]
  - Vomiting [Recovering/Resolving]
  - Blood glucose increased [Not Recovered/Not Resolved]
  - Hepatic enzyme increased [Not Recovered/Not Resolved]
  - Nasopharyngitis [Unknown]
  - Abdominal discomfort [Unknown]
  - Product dose omission issue [Recovered/Resolved]
  - Off label use [Recovered/Resolved]

NARRATIVE: CASE EVENT DATE: 20240101
